FAERS Safety Report 9726500 (Version 4)
Quarter: 2014Q2

REPORT INFORMATION
  Report Type: Spontaneous
  Country: US (occurrence: US)
  Receive Date: 20131203
  Receipt Date: 20140613
  Transmission Date: 20141212
  Serious: Yes (Hospitalization, Other)
  Sender: FDA-Public Use
  Company Number: US-BAYER-2013-146766

PATIENT
  Age: 26 Year
  Sex: Female
  Weight: 91 kg

DRUGS (1)
  1. MIRENA [Suspect]
     Indication: CONTRACEPTION
     Dosage: 20 MCG/24HR, HS
     Route: 015
     Dates: start: 20110508, end: 20130322

REACTIONS (13)
  - Abdominal operation [None]
  - Genital haemorrhage [None]
  - Uterine perforation [None]
  - Device difficult to use [None]
  - Pain [None]
  - Injury [None]
  - Emotional distress [None]
  - Abdominal pain lower [None]
  - Cyst [None]
  - Depression [None]
  - Menorrhagia [None]
  - Dysmenorrhoea [None]
  - Menstruation irregular [None]
